FAERS Safety Report 12939415 (Version 1)
Quarter: 2016Q4

REPORT INFORMATION
  Report Type: Spontaneous
  Country: US (occurrence: US)
  Receive Date: 20161114
  Receipt Date: 20161114
  Transmission Date: 20170207
  Serious: Yes (Hospitalization)
  Sender: FDA-Public Use
  Company Number: None

PATIENT
  Age: 25 Year
  Sex: Female
  Weight: 52.16 kg

DRUGS (3)
  1. DEPO-PROVERA [Suspect]
     Active Substance: MEDROXYPROGESTERONE ACETATE
     Indication: CONTRACEPTION
     Dosage: DEPO PROVERA INJECTION - ONCE EVERY 3 MONTHS
     Dates: start: 2008, end: 20160820
  2. PROAIR (HFA) [Concomitant]
  3. ADVAIR HFA [Concomitant]
     Active Substance: FLUTICASONE PROPIONATE\SALMETEROL XINAFOATE

REACTIONS (7)
  - Bone pain [None]
  - Gait disturbance [None]
  - Pain [None]
  - Peripheral swelling [None]
  - Muscle spasms [None]
  - Pain in extremity [None]
  - Dyspepsia [None]

NARRATIVE: CASE EVENT DATE: 20161010
